FAERS Safety Report 17485275 (Version 3)
Quarter: 2020Q2

REPORT INFORMATION
  Report Type: Report from Study
  Country: US (occurrence: US)
  Receive Date: 20200302
  Receipt Date: 20200616
  Transmission Date: 20200713
  Serious: Yes (Hospitalization)
  Sender: FDA-Public Use
  Company Number: US-ACTELION-A-US2019-191277

PATIENT
  Age: 43 Year
  Sex: Female
  Weight: 58.5 kg

DRUGS (3)
  1. OPSUMIT [Concomitant]
     Active Substance: MACITENTAN
  2. ELIQUIS [Concomitant]
     Active Substance: APIXABAN
  3. UPTRAVI [Suspect]
     Active Substance: SELEXIPAG
     Indication: PULMONARY ARTERIAL HYPERTENSION
     Dosage: 200 MCG, BID
     Route: 048
     Dates: start: 201905, end: 20200418

REACTIONS (19)
  - Fluid retention [Unknown]
  - Insomnia [Unknown]
  - Urinary tract infection [Unknown]
  - Gastrointestinal disorder [Unknown]
  - Migraine [Unknown]
  - Headache [Unknown]
  - Oedema peripheral [Unknown]
  - Dermatitis [Unknown]
  - Rash [Unknown]
  - Wrong technique in product usage process [Unknown]
  - Fatigue [Unknown]
  - Dizziness exertional [Unknown]
  - Pneumonia [Unknown]
  - Nausea [Unknown]
  - Vomiting [Unknown]
  - Influenza [Unknown]
  - Dyspnoea exertional [Unknown]
  - Epistaxis [Unknown]
  - Skin hypertrophy [Unknown]

NARRATIVE: CASE EVENT DATE: 201905
